FAERS Safety Report 14763728 (Version 1)
Quarter: 2018Q2

REPORT INFORMATION
  Report Type: Spontaneous
  Country: TW (occurrence: TW)
  Receive Date: 20180416
  Receipt Date: 20180416
  Transmission Date: 20180711
  Serious: Yes (Death, Other)
  Sender: FDA-Public Use
  Company Number: TW-MYLANLABS-2018M1023671

PATIENT
  Age: 25 Year
  Sex: Male

DRUGS (1)
  1. KETAMINE [Suspect]
     Active Substance: KETAMINE
     Indication: PRODUCT USED FOR UNKNOWN INDICATION
     Route: 065

REACTIONS (10)
  - Hyperthermia [Unknown]
  - Mydriasis [Unknown]
  - Drug abuse [Fatal]
  - Altered state of consciousness [Unknown]
  - Somnolence [Unknown]
  - Overdose [Fatal]
  - Lethargy [Unknown]
  - Ataxia [Unknown]
  - Pulmonary congestion [Unknown]
  - Dysarthria [Unknown]
